FAERS Safety Report 24379891 (Version 1)
Quarter: 2024Q3

REPORT INFORMATION
  Report Type: Spontaneous
  Country: KZ (occurrence: KZ)
  Receive Date: 20240930
  Receipt Date: 20240930
  Transmission Date: 20241016
  Serious: Yes (Other)
  Sender: NOVARTIS
  Company Number: KZ-002147023-NVSC2024KZ191707

PATIENT
  Sex: Female
  Weight: 160 kg

DRUGS (1)
  1. COSENTYX [Suspect]
     Active Substance: SECUKINUMAB
     Indication: Product used for unknown indication
     Dosage: 300 MG, 300 MG AT  0-1-2-3-4  WEEKS,  THEN ONCE  EVERY 28  WEEKS
     Route: 058

REACTIONS (5)
  - Psoriatic arthropathy [Unknown]
  - Psoriasis [Unknown]
  - Disease recurrence [Unknown]
  - Skin disorder [Unknown]
  - Stress [Unknown]
